FAERS Safety Report 24465576 (Version 1)
Quarter: 2024Q4

REPORT INFORMATION
  Report Type: Report from Study
  Country: US (occurrence: US)
  Receive Date: 20241018
  Receipt Date: 20241018
  Transmission Date: 20250115
  Serious: No
  Sender: ROCHE
  Company Number: US-ROCHE-3537187

PATIENT
  Age: 55 Year
  Sex: Female
  Weight: 48.18 kg

DRUGS (17)
  1. XOLAIR [Suspect]
     Active Substance: OMALIZUMAB
     Indication: Nasal polyps
     Route: 058
  2. CLONAZEPAM [Concomitant]
     Active Substance: CLONAZEPAM
     Route: 048
  3. CYCLOBENZAPRINE [Concomitant]
     Active Substance: CYCLOBENZAPRINE
  4. DICYCLOMINE [Concomitant]
     Active Substance: DICYCLOMINE HYDROCHLORIDE
  5. DULAGLUTIDE [Concomitant]
     Active Substance: DULAGLUTIDE
  6. FLUTICASONE PROPIONATE [Concomitant]
     Active Substance: FLUTICASONE PROPIONATE
     Dosage: 50 MCG
     Route: 045
  7. GABAPENTIN [Concomitant]
     Active Substance: GABAPENTIN
  8. MOMETASONE [Concomitant]
     Active Substance: MOMETASONE
     Route: 061
  9. MONTELUKAST [Concomitant]
     Active Substance: MONTELUKAST
  10. PANTOPRAZOLE [Concomitant]
     Active Substance: PANTOPRAZOLE
  11. PAROXETINE [Concomitant]
     Active Substance: PAROXETINE
  12. ROSUVASTATIN [Concomitant]
     Active Substance: ROSUVASTATIN
  13. SCOPOLAMINE [Concomitant]
     Active Substance: SCOPOLAMINE
     Route: 062
  14. SUCRALFATE [Concomitant]
     Active Substance: SUCRALFATE
  15. SYNTHROID [Concomitant]
     Active Substance: LEVOTHYROXINE SODIUM
     Dosage: 175 MCG
  16. TEMAZEPAM [Concomitant]
     Active Substance: TEMAZEPAM
  17. TRAZODONE [Concomitant]
     Active Substance: TRAZODONE HYDROCHLORIDE

REACTIONS (8)
  - Pharyngeal swelling [Unknown]
  - Swelling face [Unknown]
  - Swollen tongue [Unknown]
  - Urticaria [Unknown]
  - Hypersensitivity [Unknown]
  - Gastrooesophageal reflux disease [Recovered/Resolved]
  - Dysphonia [Recovered/Resolved]
  - Laryngeal oedema [Recovered/Resolved]

NARRATIVE: CASE EVENT DATE: 20240108
